FAERS Safety Report 8904703 (Version 1)
Quarter: 2012Q4

REPORT INFORMATION
  Report Type: 
  Country: US (occurrence: US)
  Receive Date: 20121113
  Receipt Date: 20121113
  Transmission Date: 20130627
  Serious: No
  Sender: FDA-Public Use
  Company Number: US-GLAXOSMITHKLINE-A0973605A

PATIENT
  Age: 97 Year
  Sex: Male

DRUGS (11)
  1. COREG [Suspect]
     Indication: PRODUCT USED FOR UNKNOWN INDICATION
     Dosage: 25MG Twice per day
     Route: 048
  2. LISINOPRIL [Concomitant]
  3. TERAZOSIN [Concomitant]
  4. OMEPRAZOLE [Concomitant]
  5. LEVOTHYROXINE [Concomitant]
  6. HYDROCHLOROTHIAZIDE [Concomitant]
  7. CRESTOR [Concomitant]
  8. FISH OIL [Concomitant]
  9. VITAMIN D3 [Concomitant]
  10. MULTI VITAMIN [Concomitant]
  11. ASPIRIN [Concomitant]

REACTIONS (1)
  - Heart rate decreased [Not Recovered/Not Resolved]
